FAERS Safety Report 7670230-4 (Version None)
Quarter: 2011Q3

REPORT INFORMATION
  Report Type: 
  Country: None (occurrence: None)
  Receive Date: 20110808
  Receipt Date: 20110617
  Transmission Date: 20111222
  Serious: No
  Sender: FDA-Public Use
  Company Number: US-BAYER-2011-053572

PATIENT
  Sex: Female

DRUGS (3)
  1. IBUPROFEN [Suspect]
     Indication: NECK PAIN
     Route: 048
  2. OXYCONTIN [Concomitant]
     Indication: NECK PAIN
     Route: 048
  3. ALEVE (CAPLET) [Suspect]
     Indication: NECK PAIN
     Route: 048

REACTIONS (1)
  - NECK PAIN [None]
